FAERS Safety Report 7815973-4 (Version None)
Quarter: 2011Q4

REPORT INFORMATION
  Report Type: 
  Country: None (occurrence: None)
  Receive Date: 20111014
  Receipt Date: 20111006
  Transmission Date: 20120403
  Serious: Yes (Hospitalization, Disabling, Other)
  Sender: FDA-Public Use
  Company Number: US-MERCK-1107USA00015

PATIENT
  Sex: Female

DRUGS (18)
  1. XANAX [Concomitant]
     Indication: ANXIETY
     Route: 065
     Dates: start: 19951001
  2. CLARITIN [Concomitant]
     Indication: SEASONAL ALLERGY
     Route: 048
     Dates: start: 20010701, end: 20021201
  3. FOSAMAX [Suspect]
     Indication: OSTEOPENIA
     Route: 048
     Dates: start: 20010801, end: 20020501
  4. NORVASC [Concomitant]
     Indication: BLOOD PRESSURE
     Route: 065
     Dates: start: 19960601, end: 20090301
  5. FOSAMAX [Suspect]
     Route: 048
     Dates: start: 20070301, end: 20080101
  6. FOSAMAX [Suspect]
     Route: 048
     Dates: start: 20080201, end: 20081201
  7. EFFEXOR [Concomitant]
     Indication: ANXIETY
     Route: 065
     Dates: start: 20020301, end: 20061201
  8. EFFEXOR [Concomitant]
     Indication: DEPRESSION
     Route: 065
     Dates: start: 20020301, end: 20061201
  9. ZANTAC [Concomitant]
     Indication: GASTROOESOPHAGEAL REFLUX DISEASE
     Route: 065
     Dates: start: 19980201, end: 20011101
  10. CITALOPRAM [Concomitant]
     Indication: DEPRESSION
     Route: 065
     Dates: start: 20060801, end: 20090701
  11. FOSAMAX [Suspect]
     Indication: OSTEOPOROSIS
     Route: 048
     Dates: start: 20010801, end: 20020501
  12. FOSAMAX [Suspect]
     Route: 048
     Dates: start: 20070301, end: 20080101
  13. FOSAMAX [Suspect]
     Route: 048
     Dates: start: 20080201, end: 20081201
  14. CLONAZEPAM [Concomitant]
     Indication: ANXIETY
     Route: 065
     Dates: start: 20011101
  15. PREVACID [Concomitant]
     Indication: GASTROOESOPHAGEAL REFLUX DISEASE
     Route: 065
     Dates: start: 20021201, end: 20100101
  16. ATENOLOL [Concomitant]
     Indication: BLOOD PRESSURE
     Route: 065
     Dates: start: 20060801
  17. PRILOSEC [Concomitant]
     Indication: GASTROOESOPHAGEAL REFLUX DISEASE
     Route: 048
     Dates: start: 20060801, end: 20100401
  18. EVISTA [Concomitant]
     Indication: OSTEOPOROSIS PROPHYLAXIS
     Route: 065
     Dates: start: 20020501, end: 20061201

REACTIONS (21)
  - DEBRIDEMENT [None]
  - DEPRESSION [None]
  - ORAL DISORDER [None]
  - TOOTH ABSCESS [None]
  - PAIN IN JAW [None]
  - ORAL HERPES [None]
  - TOOTHACHE [None]
  - ORAL CAVITY FISTULA [None]
  - OSTEONECROSIS OF JAW [None]
  - ABDOMINAL PAIN [None]
  - IMPAIRED HEALING [None]
  - VOMITING [None]
  - DIARRHOEA [None]
  - OSTEOMYELITIS [None]
  - ORAL INFECTION [None]
  - DIABETES MELLITUS [None]
  - HYPERSENSITIVITY [None]
  - TOOTH DISORDER [None]
  - ORAL TORUS [None]
  - JAW FRACTURE [None]
  - MUSCLE SPASMS [None]
